FAERS Safety Report 14833653 (Version 1)
Quarter: 2018Q2

REPORT INFORMATION
  Report Type: Spontaneous
  Country: US (occurrence: US)
  Receive Date: 20180501
  Receipt Date: 20180501
  Transmission Date: 20180711
  Serious: Yes (Disabling, Other)
  Sender: FDA-Public Use
  Company Number: US-ROCHE-1916886

PATIENT
  Sex: Male

DRUGS (3)
  1. AVASTIN [Suspect]
     Active Substance: BEVACIZUMAB
     Indication: VISUAL ACUITY REDUCED
     Route: 065
  2. EYLEA [Suspect]
     Active Substance: AFLIBERCEPT
     Indication: RETINAL VEIN OCCLUSION
     Dosage: ONGOING: YES
     Route: 050
  3. EYLEA [Suspect]
     Active Substance: AFLIBERCEPT
     Dosage: SINGLE DOSE
     Route: 050
     Dates: start: 20170223

REACTIONS (3)
  - Endophthalmitis [Unknown]
  - Blindness unilateral [Unknown]
  - Off label use [Unknown]

NARRATIVE: CASE EVENT DATE: 20170228
